FAERS Safety Report 6761136-3 (Version None)
Quarter: 2010Q2

REPORT INFORMATION
  Report Type: 
  Country: None (occurrence: None)
  Receive Date: 20100604
  Receipt Date: 20100521
  Transmission Date: 20101027
  Serious: Yes (Other)
  Sender: FDA-Public Use
  Company Number: 012003

PATIENT
  Sex: Female

DRUGS (3)
  1. LACOSAMIDE [Suspect]
     Indication: EPILEPSY
     Dosage: (100 MG BID ORAL), (200 MG BID)
     Route: 048
     Dates: start: 20090901
  2. LACOSAMIDE [Suspect]
     Indication: EPILEPSY
     Dosage: (100 MG BID ORAL), (200 MG BID)
     Route: 048
     Dates: start: 20091101
  3. DROSPIRENONE AND ETHINYL ESTRADIOL [Concomitant]

REACTIONS (5)
  - DRUG EXPOSURE DURING PREGNANCY [None]
  - DYSMENORRHOEA [None]
  - IRRITABILITY [None]
  - MOOD SWINGS [None]
  - PREGNANCY ON CONTRACEPTIVE [None]
